FAERS Safety Report 6027395-X (Version None)
Quarter: 2009Q1

REPORT INFORMATION
  Report Type: 
  Country: None (occurrence: None)
  Receive Date: 20090102
  Receipt Date: 20090102
  Transmission Date: 20090719
  Serious: Yes (Other)
  Sender: FDA-Public Use
  Company Number: None

PATIENT
  Age: 52 Year
  Sex: Male
  Weight: 74.8435 kg

DRUGS (1)
  1. WELLBUTRIN XL [Suspect]
     Indication: ADVERSE DRUG REACTION
     Dosage: 300 MG ONCE DAILY PO
     Route: 048
     Dates: start: 20061215, end: 20071015

REACTIONS (7)
  - AGITATION [None]
  - ANXIETY [None]
  - CONDITION AGGRAVATED [None]
  - DEPRESSION [None]
  - INSOMNIA [None]
  - MOOD SWINGS [None]
  - PRODUCT QUALITY ISSUE [None]
